FAERS Safety Report 7465772-0 (Version None)
Quarter: 2011Q2

REPORT INFORMATION
  Report Type: 
  Country: None (occurrence: None)
  Receive Date: 20110428
  Receipt Date: 20110412
  Transmission Date: 20111010
  Serious: Yes (Death, Hospitalization)
  Sender: FDA-Public Use
  Company Number: 2011AP000717

PATIENT
  Age: 78 Year
  Sex: Female

DRUGS (11)
  1. RISEDRONATE [Concomitant]
  2. AMLODIPINE [Concomitant]
  3. NATEGLINIDE [Concomitant]
  4. ERGOCALCIFEROL [Concomitant]
  5. ZOLEDRONIC ACID [Concomitant]
  6. METFORMIN HCL [Suspect]
     Indication: TYPE 2 DIABETES MELLITUS
     Dosage: 850 MG, BID
  7. GLIMEPIRIDE [Concomitant]
  8. INDAPAMIDE [Concomitant]
  9. ROSUVASTATIN [Concomitant]
  10. METOPROLOL SUCCINATE [Concomitant]
  11. FUROSEMIDE [Concomitant]

REACTIONS (22)
  - BLOOD CHLORIDE DECREASED [None]
  - BLOOD ALCOHOL INCREASED [None]
  - TOXICITY TO VARIOUS AGENTS [None]
  - BLOOD CREATINE PHOSPHOKINASE INCREASED [None]
  - METABOLIC ACIDOSIS [None]
  - PUPIL FIXED [None]
  - HYPOTHERMIA [None]
  - BLOOD PHOSPHORUS INCREASED [None]
  - DRUG LEVEL INCREASED [None]
  - HEART RATE DECREASED [None]
  - WHITE BLOOD CELL COUNT INCREASED [None]
  - PERIPHERAL COLDNESS [None]
  - BLOOD POTASSIUM INCREASED [None]
  - BLOOD CALCIUM DECREASED [None]
  - OEDEMA PERIPHERAL [None]
  - DRY SKIN [None]
  - LACTIC ACIDOSIS [None]
  - BLOOD PRESSURE DECREASED [None]
  - UNRESPONSIVE TO STIMULI [None]
  - PLATELET COUNT DECREASED [None]
  - RENAL FAILURE ACUTE [None]
  - CONTINUOUS HAEMODIAFILTRATION [None]
